FAERS Safety Report 24225016 (Version 2)
Quarter: 2024Q4

REPORT INFORMATION
  Report Type: Report from Study
  Country: US (occurrence: US)
  Receive Date: 20240820
  Receipt Date: 20241014
  Transmission Date: 20250115
  Serious: Yes (Other)
  Sender: ABBVIE
  Company Number: US-ABBVIE-5882316

PATIENT
  Sex: Female

DRUGS (1)
  1. RINVOQ [Suspect]
     Active Substance: UPADACITINIB
     Indication: Dermatitis atopic
     Route: 048
     Dates: start: 20231223

REACTIONS (3)
  - Neoplasm malignant [Not Recovered/Not Resolved]
  - Lobular breast carcinoma in situ [Unknown]
  - Unevaluable event [Not Recovered/Not Resolved]
